FAERS Safety Report 12521523 (Version 1)
Quarter: 2016Q3

REPORT INFORMATION
  Report Type: Spontaneous
  Country: US (occurrence: US)
  Receive Date: 20160701
  Receipt Date: 20160701
  Transmission Date: 20161109
  Serious: Yes (Hospitalization)
  Sender: FDA-Public Use
  Company Number: US-JNJFOC-20160624202

PATIENT
  Age: 79 Year
  Sex: Female
  Weight: 53.52 kg

DRUGS (1)
  1. DARZALEX [Suspect]
     Active Substance: DARATUMUMAB
     Indication: PLASMA CELL MYELOMA
     Dosage: 5 WEEKS TREATMENT;  WEEK 5 ON 11-FEB-2016
     Route: 042
     Dates: start: 20160114, end: 20160211

REACTIONS (8)
  - Pyrexia [Unknown]
  - Pain [Unknown]
  - Chronic obstructive pulmonary disease [Unknown]
  - Asthenia [Unknown]
  - Pneumonia [Unknown]
  - Drug dose omission [Unknown]
  - Urinary tract infection [Unknown]
  - Cardiac failure congestive [Unknown]

NARRATIVE: CASE EVENT DATE: 20160226
